FAERS Safety Report 8179579-2 (Version None)
Quarter: 2012Q1

REPORT INFORMATION
  Report Type: 
  Country: None (occurrence: None)
  Receive Date: 20120229
  Receipt Date: 20120229
  Transmission Date: 20120608
  Serious: Yes (Life-Threatening)
  Sender: FDA-Public Use
  Company Number: None

PATIENT
  Sex: Female
  Weight: 58.9676 kg

DRUGS (2)
  1. MOBIC [Suspect]
     Indication: BACK PAIN
     Dosage: 7.5 MG TAB BID PO
     Route: 048
  2. MOBIC [Suspect]
     Indication: PARAESTHESIA
     Dosage: 7.5 MG TAB BID PO
     Route: 048

REACTIONS (6)
  - DYSPEPSIA [None]
  - ASTHENIA [None]
  - FATIGUE [None]
  - DIARRHOEA [None]
  - NAUSEA [None]
  - ABDOMINAL PAIN UPPER [None]
